FAERS Safety Report 10243239 (Version 2)
Quarter: 2014Q4

REPORT INFORMATION
  Report Type: Spontaneous
  Country: US (occurrence: None)
  Receive Date: 20140616
  Receipt Date: 20141030
  Transmission Date: 20150528
  Serious: Yes (Hospitalization)
  Sender: FDA-Public Use
  Company Number: UNT-2014-001752

PATIENT
  Age: 59 Year
  Sex: Female
  Weight: 85.7 kg

DRUGS (1)
  1. REMODULIN [Suspect]
     Active Substance: TREPROSTINIL
     Indication: PULMONARY ARTERIAL HYPERTENSION
     Dosage: 0.082 UG/KG/MIN, CONTINUING, SUBCUTANEOUS
     Route: 058
     Dates: start: 20090805

REACTIONS (1)
  - Abscess [None]

NARRATIVE: CASE EVENT DATE: 20091113
